FAERS Safety Report 4447630-9 (Version None)
Quarter: 2004Q3

REPORT INFORMATION
  Report Type: 
  Country: None (occurrence: None)
  Receive Date: 20040913
  Receipt Date: 20040830
  Transmission Date: 20050211
  Serious: Yes (Death)
  Sender: FDA-Public Use
  Company Number: US-JNJFOC-20040701062

PATIENT
  Sex: Male
  Weight: 54.43 kg

DRUGS (20)
  1. DURAGESIC [Suspect]
     Indication: CANCER PAIN
     Route: 062
  2. METHADONE HCL [Concomitant]
  3. PERCOCET [Concomitant]
  4. PERCOCET [Concomitant]
  5. PREDNISONE [Concomitant]
  6. REMERON [Concomitant]
  7. PRILOSEC [Concomitant]
  8. HYDROCHLOROTHIAZIDE [Concomitant]
     Dosage: 37.5/25
  9. ATIVAN [Concomitant]
     Indication: ANXIETY
  10. MORPHINE [Concomitant]
     Dosage: 0.25 CC TO 0.5 CC
  11. ADVIL [Concomitant]
  12. MULTI-VITAMINS [Concomitant]
  13. MULTI-VITAMINS [Concomitant]
  14. MULTI-VITAMINS [Concomitant]
  15. MULTI-VITAMINS [Concomitant]
  16. MULTI-VITAMINS [Concomitant]
  17. MULTI-VITAMINS [Concomitant]
  18. MULTI-VITAMINS [Concomitant]
  19. MULTI-VITAMINS [Concomitant]
  20. COMPAZINE [Concomitant]

REACTIONS (6)
  - BLOOD PRESSURE IMMEASURABLE [None]
  - FEELING ABNORMAL [None]
  - HYPOVENTILATION [None]
  - INCOHERENT [None]
  - MEDICATION ERROR [None]
  - ORGAN FAILURE [None]
